FAERS Safety Report 9228519 (Version 1)
Quarter: 2013Q2

REPORT INFORMATION
  Report Type: Spontaneous
  Country: US (occurrence: US)
  Receive Date: 20130412
  Receipt Date: 20130412
  Transmission Date: 20140414
  Serious: Yes (Hospitalization)
  Sender: FDA-Public Use
  Company Number: US-ROCHE-1212353

PATIENT
  Sex: Male

DRUGS (1)
  1. PEGASYS [Suspect]
     Indication: HEPATITIS C
     Route: 065

REACTIONS (6)
  - Dehydration [Unknown]
  - Intestinal obstruction [Unknown]
  - Constipation [Unknown]
  - Hepatic infection [Unknown]
  - Pyrexia [Unknown]
  - Fatigue [Unknown]
